FAERS Safety Report 13274437 (Version 1)
Quarter: 2017Q1

REPORT INFORMATION
  Report Type: Report from Study
  Country: US (occurrence: US)
  Receive Date: 20170227
  Receipt Date: 20170227
  Transmission Date: 20170428
  Serious: Yes (Hospitalization, Other)
  Sender: FDA-Public Use
  Company Number: US-MYLANLABS-2017M1011176

PATIENT

DRUGS (3)
  1. ERLOTINIB [Suspect]
     Active Substance: ERLOTINIB
     Indication: DUCTAL ADENOCARCINOMA OF PANCREAS
     Dosage: FOR 8 WEEKS
     Route: 048
  2. ASCORBIC ACID. [Concomitant]
     Active Substance: ASCORBIC ACID
     Indication: DUCTAL ADENOCARCINOMA OF PANCREAS
     Dosage: 8 WEEK CYCLE; EACH CYCLE CONSISTED OF THREE INFUSIONS PER WEEK
     Route: 041
  3. GEMCITABINE [Suspect]
     Active Substance: GEMCITABINE\GEMCITABINE HYDROCHLORIDE
     Indication: DUCTAL ADENOCARCINOMA OF PANCREAS
     Dosage: 1000 MG/M2 OVER 30 MIN ON DAY 1, ONCE WEEKLY FOR 7 WEEKS FOLLOWED BY A 1 WEEK REST
     Route: 042

REACTIONS (2)
  - Internal haemorrhage [Unknown]
  - Haemoglobin decreased [Unknown]
